FAERS Safety Report 5842108-X (Version None)
Quarter: 2008Q3

REPORT INFORMATION
  Report Type: 
  Country: None (occurrence: None)
  Receive Date: 20080812
  Receipt Date: 20080811
  Transmission Date: 20090109
  Serious: Yes (Hospitalization)
  Sender: FDA-Public Use
  Company Number: AU-BRISTOL-MYERS SQUIBB COMPANY-14296040

PATIENT
  Age: 66 Year
  Sex: Male

DRUGS (9)
  1. AVAPRO [Suspect]
     Indication: ESSENTIAL HYPERTENSION
     Route: 048
     Dates: end: 20060615
  2. BACTRIM DS [Suspect]
     Dosage: 1 DF = 2 DOSE UNIT NOT SPECIFIED, FORMULATION - TABLETS
     Route: 048
     Dates: end: 20060615
  3. AVANDIA [Suspect]
     Indication: DIABETES MELLITUS
     Dosage: FORMULATION - TABLETS, FILM COATED
     Route: 048
     Dates: start: 20060301, end: 20060615
  4. DIAMICRON [Suspect]
     Indication: DIABETES MELLITUS
     Dosage: FORMULATION - TABLETS
     Route: 048
     Dates: end: 20060615
  5. NORVASC [Suspect]
     Indication: ESSENTIAL HYPERTENSION
     Dosage: FORMULATION - TABLETS
     Route: 048
     Dates: end: 20060615
  6. AZATHIOPRINE [Suspect]
     Dosage: FORMULATION - TABLETS
     Route: 048
     Dates: end: 20060615
  7. ATENOLOL [Suspect]
     Indication: ESSENTIAL HYPERTENSION
     Dosage: FORMULATION - TABLETS
     Route: 048
     Dates: end: 20060615
  8. CATAPRES [Suspect]
     Indication: ESSENTIAL HYPERTENSION
     Dates: end: 20060615
  9. ENDEP [Suspect]
     Indication: DEPRESSION
     Route: 048
     Dates: end: 20060615

REACTIONS (5)
  - HYPOGLYCAEMIA [None]
  - PRURITUS [None]
  - RASH MACULO-PAPULAR [None]
  - RENAL IMPAIRMENT [None]
  - SKIN EXFOLIATION [None]
